FAERS Safety Report 25492169 (Version 1)
Quarter: 2025Q2

REPORT INFORMATION
  Report Type: Spontaneous
  Country: JP (occurrence: JP)
  Receive Date: 20250630
  Receipt Date: 20250630
  Transmission Date: 20250717
  Serious: Yes (Other)
  Sender: Unknown Manufacturer
  Company Number: JP-MTPC-MTPC2025-0011598

PATIENT
  Age: 3 Decade
  Sex: Female

DRUGS (3)
  1. METHOTREXATE [Suspect]
     Active Substance: METHOTREXATE
     Indication: Acute lymphocytic leukaemia
     Route: 029
  2. EDARAVONE [Suspect]
     Active Substance: EDARAVONE
     Indication: Cerebral infarction
     Route: 065
  3. LEVOLEUCOVORIN CALCIUM [Concomitant]
     Active Substance: LEVOLEUCOVORIN CALCIUM
     Route: 065

REACTIONS (1)
  - Leukoencephalopathy [Recovering/Resolving]
